FAERS Safety Report 10185025 (Version 1)
Quarter: 2014Q2

REPORT INFORMATION
  Report Type: Spontaneous
  Country: TR (occurrence: None)
  Receive Date: 20140520
  Receipt Date: 20140520
  Transmission Date: 20141212
  Serious: Yes (Life-Threatening)
  Sender: FDA-Public Use
  Company Number: None

PATIENT
  Age: 21 Year
  Sex: Male
  Weight: 56 kg

DRUGS (1)
  1. PROPECIA [Suspect]
     Indication: ALOPECIA
     Dosage: 14 PILLS TAKEN BY MOUTH
     Route: 048
     Dates: start: 20131214, end: 20131228

REACTIONS (16)
  - Genital pain [None]
  - Insomnia [None]
  - Dry mouth [None]
  - Dry skin [None]
  - Muscle atrophy [None]
  - Muscle twitching [None]
  - Pain [None]
  - Lipoatrophy [None]
  - Testicular atrophy [None]
  - Penile size reduced [None]
  - Reading disorder [None]
  - Vision blurred [None]
  - Night blindness [None]
  - Visual impairment [None]
  - Diplopia [None]
  - Cognitive disorder [None]
